FAERS Safety Report 17283380 (Version 1)
Quarter: 2020Q1

REPORT INFORMATION
  Report Type: Spontaneous
  Country: US (occurrence: US)
  Receive Date: 20200117
  Receipt Date: 20200117
  Transmission Date: 20200409
  Serious: Yes (Disabling, Other)
  Sender: FDA-Public Use
  Company Number: None

PATIENT
  Age: 62 Year
  Sex: Female
  Weight: 83.25 kg

DRUGS (10)
  1. TRAMADOL 50MG [Concomitant]
     Active Substance: TRAMADOL
  2. SYNTHROID 188 MCG [Concomitant]
  3. POWER WHEELCHAIR [Concomitant]
  4. MOBILITY WALKER [Concomitant]
  5. EYE GLASSES [Concomitant]
  6. LISINOPRIL. [Concomitant]
     Active Substance: LISINOPRIL
  7. MOBILITY SCOOTER [Concomitant]
  8. MULTIVITAMINS [Concomitant]
     Active Substance: VITAMINS
  9. THERATEARS EXTRA [Suspect]
     Active Substance: CARBOXYMETHYLCELLULOSE SODIUM
     Indication: DRY EYE
     Dosage: ?          QUANTITY:1 DROP(S);?
     Route: 047
     Dates: start: 20190901, end: 20191203
  10. MYCOPHENOLATE MOFETIL. [Concomitant]
     Active Substance: MYCOPHENOLATE MOFETIL

REACTIONS (6)
  - Visual impairment [None]
  - Photopsia [None]
  - Vitreous floaters [None]
  - Vision blurred [None]
  - Product contamination [None]
  - Blepharitis [None]

NARRATIVE: CASE EVENT DATE: 20191001
